FAERS Safety Report 9639299 (Version 2)
Quarter: 2013Q4

REPORT INFORMATION
  Report Type: Report from Study
  Country: DE (occurrence: DE)
  Receive Date: 20131022
  Receipt Date: 20131022
  Transmission Date: 20140711
  Serious: Yes (Other)
  Sender: FDA-Public Use
  Company Number: DE-ROCHE-1154904

PATIENT
  Sex: Female

DRUGS (4)
  1. PEG-INTERFERON ALFA 2A [Suspect]
     Indication: CHRONIC HEPATITIS C
     Route: 065
  2. LEVOVIRIN [Suspect]
     Indication: CHRONIC HEPATITIS C
     Route: 065
  3. PIRACETAM [Concomitant]
  4. ACTOVEGIN [Concomitant]

REACTIONS (2)
  - Tooth loss [Unknown]
  - Cerebrovascular accident [Unknown]
